FAERS Safety Report 9645080 (Version 1)
Quarter: 2013Q4

REPORT INFORMATION
  Report Type: Spontaneous
  Country: US (occurrence: None)
  Receive Date: 20131023
  Receipt Date: 20131023
  Transmission Date: 20140711
  Serious: Yes (Other)
  Sender: FDA-Public Use
  Company Number: None

PATIENT
  Sex: Male
  Weight: 37.3 kg

DRUGS (1)
  1. KEPRA [Suspect]
     Indication: CONVULSION
     Route: 048
     Dates: start: 201310

REACTIONS (4)
  - Convulsion [None]
  - Product substitution issue [None]
  - Abdominal pain upper [None]
  - Headache [None]
